FAERS Safety Report 8927975 (Version 1)
Quarter: 2012Q4

REPORT INFORMATION
  Report Type: Spontaneous
  Country: US (occurrence: None)
  Receive Date: 20121126
  Receipt Date: 20121126
  Transmission Date: 20130627
  Serious: Yes (Other)
  Sender: FDA-Public Use
  Company Number: None

PATIENT
  Age: 94 Year
  Sex: Female
  Weight: 56.7 kg

DRUGS (1)
  1. MORPHINE SURG. ER 30 MG MYLAN [Suspect]
     Indication: CHRONIC PAIN
     Route: 048
     Dates: start: 20121106, end: 20121107

REACTIONS (6)
  - Emotional disorder [None]
  - Mental disorder [None]
  - Confusional state [None]
  - Fear [None]
  - Amnesia [None]
  - Product quality issue [None]
